FAERS Safety Report 8295310-4 (Version None)
Quarter: 2012Q2

REPORT INFORMATION
  Report Type: 
  Country: None (occurrence: None)
  Receive Date: 20120418
  Receipt Date: 20120403
  Transmission Date: 20120825
  Serious: Yes (Disabling)
  Sender: FDA-Public Use
  Company Number: JP-BAXTER-2011BH036327

PATIENT
  Sex: Female

DRUGS (7)
  1. BLEOMYCIN SULFATE [Suspect]
     Route: 042
     Dates: start: 20111004
  2. ETOPOSIDE [Suspect]
     Indication: OVARIAN DYSGERMINOMA STAGE IV
     Route: 042
     Dates: start: 20110927, end: 20110927
  3. CISPLATIN [Suspect]
     Indication: OVARIAN DYSGERMINOMA STAGE IV
     Route: 042
     Dates: start: 20110927, end: 20110927
  4. RAMELTEON [Concomitant]
     Route: 048
     Dates: start: 20110927
  5. EMEND [Concomitant]
     Route: 048
     Dates: start: 20110927
  6. PRIMPERAN TAB [Concomitant]
     Route: 048
     Dates: start: 20110927
  7. BLEOMYCIN SULFATE [Suspect]
     Indication: OVARIAN DYSGERMINOMA STAGE IV
     Route: 042
     Dates: start: 20110927, end: 20110927

REACTIONS (3)
  - FEELING HOT [None]
  - ERYTHEMA [None]
  - PRURITUS [None]
